FAERS Safety Report 13105075 (Version 1)
Quarter: 2017Q1

REPORT INFORMATION
  Report Type: Spontaneous
  Country: US (occurrence: US)
  Receive Date: 20170111
  Receipt Date: 20170111
  Transmission Date: 20170428
  Serious: No
  Sender: FDA-Public Use
  Company Number: US-SUN PHARMACEUTICAL INDUSTRIES LTD-2016US-123296

PATIENT
  Sex: Female
  Weight: 58.51 kg

DRUGS (2)
  1. AQUAPHOR [Suspect]
     Active Substance: PETROLATUM
     Indication: RADIATION SKIN INJURY
     Dosage: UNK
     Route: 065
     Dates: start: 2016
  2. HALOG [Suspect]
     Active Substance: HALCINONIDE
     Indication: RADIATION SKIN INJURY
     Dosage: UNK
     Route: 065
     Dates: start: 2016, end: 2016

REACTIONS (3)
  - Skin exfoliation [Unknown]
  - Pain [Recovered/Resolved]
  - Therapeutic response decreased [Unknown]

NARRATIVE: CASE EVENT DATE: 2016
